FAERS Safety Report 5728271-X (Version None)
Quarter: 2008Q2

REPORT INFORMATION
  Report Type: 
  Country: None (occurrence: None)
  Receive Date: 20080502
  Receipt Date: 20080502
  Transmission Date: 20081010
  Serious: No
  Sender: FDA-Public Use
  Company Number: None

PATIENT
  Age: 57 Year
  Sex: Female

DRUGS (8)
  1. THYMOGLOBULIN [Suspect]
     Dates: start: 20060617, end: 20060620
  2. CYCLOSPORINE [Concomitant]
  3. LEVOFLOXACIN [Concomitant]
  4. VALACYCLOVIR [Concomitant]
  5. PREDNISONE TAB [Concomitant]
  6. VORICONAZOLE [Concomitant]
  7. CEFTAZIDIME [Concomitant]
  8. VANCOMYCIN [Concomitant]

REACTIONS (12)
  - ACUTE HEPATIC FAILURE [None]
  - CONFUSIONAL STATE [None]
  - DRUG TOXICITY [None]
  - ENCEPHALOPATHY [None]
  - EPSTEIN-BARR VIRUS INFECTION [None]
  - FEBRILE NEUTROPENIA [None]
  - FREQUENT BOWEL MOVEMENTS [None]
  - MENTAL STATUS CHANGES [None]
  - NAUSEA [None]
  - RENAL IMPAIRMENT [None]
  - URINE OUTPUT DECREASED [None]
  - VOMITING [None]
